FAERS Safety Report 9799341 (Version 1)
Quarter: 2014Q1

REPORT INFORMATION
  Report Type: Report from Study
  Country: US (occurrence: US)
  Receive Date: 20140106
  Receipt Date: 20140106
  Transmission Date: 20141002
  Serious: Yes (Other)
  Sender: FDA-Public Use
  Company Number: US-BAYER-2013-159336

PATIENT
  Age: 21 Year
  Sex: Male
  Weight: 58.96 kg

DRUGS (2)
  1. BETASERON [Suspect]
     Indication: MULTIPLE SCLEROSIS
     Dosage: UNK
     Dates: start: 20130612, end: 20130927
  2. BETASERON [Suspect]
     Indication: MULTIPLE SCLEROSIS
     Dosage: UNK
     Dates: start: 20131108, end: 20131212

REACTIONS (7)
  - Decreased appetite [None]
  - Weight decreased [None]
  - Loss of consciousness [None]
  - Hypotension [None]
  - Blood glucose decreased [None]
  - Arthralgia [Recovered/Resolved]
  - Intentional drug misuse [None]
